FAERS Safety Report 6732275-8 (Version None)
Quarter: 2010Q2

REPORT INFORMATION
  Report Type: 
  Country: None (occurrence: None)
  Receive Date: 20100519
  Receipt Date: 20100514
  Transmission Date: 20101027
  Serious: Yes (Hospitalization)
  Sender: FDA-Public Use
  Company Number: B0652847A

PATIENT
  Sex: Male

DRUGS (4)
  1. AUGMENTIN '125' [Suspect]
     Indication: DRUG USE FOR UNKNOWN INDICATION
     Route: 048
     Dates: start: 20100301, end: 20100303
  2. TRIATEC [Concomitant]
     Route: 065
  3. ASPEGIC 1000 [Concomitant]
     Route: 065
  4. COLCHICINE [Concomitant]
     Route: 065
     Dates: start: 20100301, end: 20100303

REACTIONS (4)
  - DECREASED APPETITE [None]
  - HEPATITIS CHOLESTATIC [None]
  - JAUNDICE [None]
  - PRURITUS [None]
